FAERS Safety Report 24974902 (Version 4)
Quarter: 2025Q3

REPORT INFORMATION
  Report Type: Spontaneous
  Country: EU (occurrence: EU)
  Receive Date: 20250217
  Receipt Date: 20250802
  Transmission Date: 20251020
  Serious: Yes (Other)
  Sender: ALEXION PHARMACEUTICALS
  Company Number: EU-AstraZeneca-CH-00803976AM

PATIENT
  Age: 66 Year
  Sex: Female

DRUGS (3)
  1. XIGDUO XR [Suspect]
     Active Substance: DAPAGLIFLOZIN PROPANEDIOL\METFORMIN HYDROCHLORIDE
     Indication: Diabetes mellitus
  2. ASTRAZENECA COVID-19 VACCINE [Suspect]
     Active Substance: AZD-1222
     Route: 065
  3. JANUVIA [Concomitant]
     Active Substance: SITAGLIPTIN PHOSPHATE
     Route: 065

REACTIONS (18)
  - Gangrene [Recovered/Resolved]
  - Nephrolithiasis [Recovered/Resolved]
  - Skin discolouration [Recovered/Resolved]
  - Vulva cyst [Recovered/Resolved]
  - Chills [Recovered/Resolved]
  - Malaise [Recovered/Resolved]
  - Pyrexia [Recovered/Resolved]
  - Renal colic [Recovered/Resolved]
  - Incontinence [Recovered/Resolved]
  - Bone disorder [Recovered/Resolved]
  - Contusion [Recovered/Resolved]
  - Product dose omission issue [Recovered/Resolved]
  - Vulvovaginal pain [Recovered/Resolved]
  - Varicose vein ruptured [Unknown]
  - COVID-19 [Unknown]
  - Cough [Unknown]
  - Pain [Unknown]
  - Genital discomfort [Unknown]
